FAERS Safety Report 11664058 (Version 1)
Quarter: 2015Q4

REPORT INFORMATION
  Report Type: Report from Study
  Country: US (occurrence: US)
  Receive Date: 20151027
  Receipt Date: 20151027
  Transmission Date: 20160304
  Serious: Yes (Hospitalization)
  Sender: FDA-Public Use
  Company Number: PHHY2014US154210

PATIENT
  Age: 8 Year
  Sex: Male
  Weight: 22.1 kg

DRUGS (3)
  1. DESFERAL [Concomitant]
     Active Substance: DEFEROXAMINE MESYLATE
     Indication: CHELATION THERAPY
     Dosage: 2000 MG, QD
     Route: 065
     Dates: start: 20110118
  2. EXJADE [Suspect]
     Active Substance: DEFERASIROX
     Indication: CHELATION THERAPY
     Dosage: 500 MG, UNK
     Route: 048
     Dates: start: 20100121
  3. FOLIC ACID. [Concomitant]
     Active Substance: FOLIC ACID
     Indication: SUPPLEMENTATION THERAPY
     Dosage: 1 MG, QD
     Route: 048
     Dates: start: 20090313

REACTIONS (2)
  - Atelectasis [Recovered/Resolved]
  - Febrile nonhaemolytic transfusion reaction [Recovered/Resolved]

NARRATIVE: CASE EVENT DATE: 20140830
